FAERS Safety Report 9922781 (Version 5)
Quarter: 2014Q3

REPORT INFORMATION
  Report Type: Spontaneous
  Country: US (occurrence: US)
  Receive Date: 20140225
  Receipt Date: 20140801
  Transmission Date: 20150326
  Serious: Yes (Hospitalization, Disabling, Other)
  Sender: FDA-Public Use
  Company Number: US-009507513-1204USA00536

PATIENT
  Sex: Female
  Weight: 65.76 kg

DRUGS (5)
  1. FOSAMAX [Suspect]
     Active Substance: ALENDRONATE SODIUM
     Indication: OSTEOPOROSIS
     Dosage: 70 MG, QW
     Route: 048
     Dates: end: 200803
  2. ALENDRONATE SODIUM. [Suspect]
     Active Substance: ALENDRONATE SODIUM
     Indication: OSTEOPENIA
  3. ALENDRONATE SODIUM. [Suspect]
     Active Substance: ALENDRONATE SODIUM
     Indication: OSTEOPOROSIS
     Dosage: 70 MG, UNK
     Route: 048
     Dates: start: 200804, end: 200904
  4. EVISTA [Concomitant]
     Active Substance: RALOXIFENE HYDROCHLORIDE
     Indication: OSTEOPOROSIS
     Dosage: UNK
     Dates: start: 200603
  5. FOSAMAX [Suspect]
     Active Substance: ALENDRONATE SODIUM
     Indication: OSTEOPENIA

REACTIONS (16)
  - Low turnover osteopathy [Not Recovered/Not Resolved]
  - Osteoarthritis [Unknown]
  - Pubis fracture [Unknown]
  - Erythema [Unknown]
  - Bone cyst [Unknown]
  - Rotator cuff syndrome [Unknown]
  - Fall [Unknown]
  - Femur fracture [Recovered/Resolved]
  - Vascular calcification [Unknown]
  - Pain in extremity [Unknown]
  - Humerus fracture [Unknown]
  - Osteoporosis [Not Recovered/Not Resolved]
  - Intramedullary rod insertion [Unknown]
  - Bone disorder [Unknown]
  - Rotator cuff syndrome [Unknown]
  - Hernia repair [Unknown]

NARRATIVE: CASE EVENT DATE: 20060311
